FAERS Safety Report 12162260 (Version 5)
Quarter: 2021Q3

REPORT INFORMATION
  Report Type: Spontaneous
  Country: GB (occurrence: GB)
  Receive Date: 20160309
  Receipt Date: 20210813
  Transmission Date: 20211014
  Serious: Yes (Disabling, Other)
  Sender: FDA-Public Use
  Company Number: GB-AUROBINDO-AUR-APL-2010-01683

PATIENT
  Age: 49 Year
  Sex: Female
  Weight: 73 kg

DRUGS (8)
  1. ALLI [Suspect]
     Active Substance: ORLISTAT
     Indication: OBESITY
     Dosage: 1 DOSAGE FORM, 3 TIMES A DAY
     Route: 048
     Dates: start: 200903, end: 200906
  2. ALLI [Suspect]
     Active Substance: ORLISTAT
     Dosage: 3 DOSAGE FORM, ONCE A DAY (1 DF, TID)
     Route: 048
     Dates: start: 200903, end: 200906
  3. FLUOXETINE [Suspect]
     Active Substance: FLUOXETINE HYDROCHLORIDE
     Indication: DEPRESSION
     Dosage: 20 MILLIGRAM, ONCE A DAY
     Route: 048
     Dates: start: 2000
  4. LEVONORGESTREL. [Suspect]
     Active Substance: LEVONORGESTREL
     Indication: PRODUCT USED FOR UNKNOWN INDICATION
     Dosage: 1 DOSAGE FORM, ONCE A DAY
     Route: 048
  5. NORGESTREL [Suspect]
     Active Substance: NORGESTREL
     Indication: PRODUCT USED FOR UNKNOWN INDICATION
     Dosage: UNK
     Route: 048
  6. ESTROGEN [Suspect]
     Active Substance: ESTROGENS
     Indication: PRODUCT USED FOR UNKNOWN INDICATION
     Dosage: 1 DOSAGE FORM, ONCE A DAY
     Route: 048
  7. PREMPAK [Suspect]
     Active Substance: ESTROGENS, CONJUGATED\NORGESTREL
     Indication: MENOPAUSAL SYMPTOMS
     Dosage: 1 DOSAGE FORM, ONCE A DAY
     Route: 048
     Dates: start: 2006
  8. MELOXICAM. [Concomitant]
     Active Substance: MELOXICAM
     Indication: ARTHRALGIA
     Dosage: 1 DOSAGE FORM, ONCE A DAY
     Route: 048
     Dates: start: 20090225, end: 20090325

REACTIONS (5)
  - Depression [Recovered/Resolved]
  - Crying [Recovered/Resolved]
  - Hot flush [Recovered/Resolved]
  - Menopausal symptoms [Recovered/Resolved]
  - Depressed mood [Recovered/Resolved]

NARRATIVE: CASE EVENT DATE: 200904
